FAERS Safety Report 7099292-2 (Version None)
Quarter: 2010Q4

REPORT INFORMATION
  Report Type: 
  Country: None (occurrence: None)
  Receive Date: 20101112
  Receipt Date: 20101102
  Transmission Date: 20110411
  Serious: Yes (Hospitalization)
  Sender: FDA-Public Use
  Company Number: PHHY2010FR66708

PATIENT
  Sex: Male

DRUGS (17)
  1. TEGRETOL [Suspect]
     Dosage: 600 MG, BID
  2. TEGRETOL [Suspect]
     Dosage: 300 MG BID
  3. TEGRETOL [Suspect]
     Dosage: 200 MG, BID
     Route: 048
  4. TEGRETOL [Suspect]
     Dosage: 100 MG, BID
     Route: 048
     Dates: end: 20101011
  5. INIPOMP [Suspect]
     Dosage: 40 MG, QD
  6. TRIATEC [Concomitant]
     Dosage: 10 MG, QD
  7. PARIET [Concomitant]
  8. TAHOR [Concomitant]
     Dosage: 10 MG, UNK
  9. KARDEGIC [Concomitant]
     Dosage: 75 MG, QD
  10. BISOPROLOL FUMARATE [Concomitant]
     Dosage: 5 MG, QD
  11. VASTAREL ^BIOPHARMA^ [Concomitant]
     Dosage: 20 MG, TID
  12. BRONCHODUAL [Concomitant]
     Dosage: 3 DF, QD
  13. BECOTIDE [Concomitant]
     Dosage: 4 DF, QD
  14. PERMIXON [Concomitant]
     Dosage: 160 MG, BID
  15. TADENAN [Concomitant]
     Dosage: UNK
     Dates: start: 20100818
  16. KEPPRA [Concomitant]
     Dosage: 250 MG, BID
  17. KEPPRA [Concomitant]
     Dosage: 500 MG, BID

REACTIONS (11)
  - BRADYCARDIA [None]
  - CONFUSIONAL STATE [None]
  - DIZZINESS [None]
  - FATIGUE [None]
  - GENERAL PHYSICAL HEALTH DETERIORATION [None]
  - HYPERKALAEMIA [None]
  - HYPONATRAEMIA [None]
  - MALAISE [None]
  - MUSCULAR WEAKNESS [None]
  - OEDEMA PERIPHERAL [None]
  - SOMNOLENCE [None]
